FAERS Safety Report 14257495 (Version 4)
Quarter: 2018Q1

REPORT INFORMATION
  Report Type: Other
  Country: PL (occurrence: PL)
  Receive Date: 20171207
  Receipt Date: 20180221
  Transmission Date: 20180508
  Serious: Yes (Hospitalization, Other)
  Sender: FDA-Public Use
  Company Number: PL-MACLEODS PHARMACEUTICALS US LTD-MAC2017006496

PATIENT

DRUGS (5)
  1. METOPROLOL. [Suspect]
     Active Substance: METOPROLOL
     Dosage: 25 MG, QD EVERY EVENING
     Route: 048
  2. ROSUVASTATIN 20 MG TABLET [Suspect]
     Active Substance: ROSUVASTATIN
     Indication: PRODUCT USED FOR UNKNOWN INDICATION
     Dosage: 20 MG, UNK
     Route: 048
  3. ASPIRIN. [Suspect]
     Active Substance: ASPIRIN
     Indication: DYSLIPIDAEMIA
     Dosage: 75 MG, QD (TABLET)
     Route: 048
  4. METOPROLOL. [Suspect]
     Active Substance: METOPROLOL
     Indication: DYSLIPIDAEMIA
     Dosage: 50 MG, QD EVERY MORNING
     Route: 048
  5. CLOPIDOGREL [Suspect]
     Active Substance: CLOPIDOGREL BISULFATE
     Indication: DYSLIPIDAEMIA
     Dosage: 75 MG, QD
     Route: 048

REACTIONS (2)
  - Drug ineffective [Unknown]
  - Coronary artery disease [Not Recovered/Not Resolved]
